FAERS Safety Report 14453331 (Version 1)
Quarter: 2018Q1

REPORT INFORMATION
  Report Type: Spontaneous
  Country: AU (occurrence: AU)
  Receive Date: 20180129
  Receipt Date: 20180129
  Transmission Date: 20180509
  Serious: Yes (Hospitalization, Other)
  Sender: FDA-Public Use
  Company Number: AU-ASTELLAS-2018US004901

PATIENT
  Age: 69 Year
  Sex: Male

DRUGS (1)
  1. TACROLIMUS. [Suspect]
     Active Substance: TACROLIMUS
     Indication: LIVER TRANSPLANT
     Dosage: UNK, UNKNOWN FREQ.
     Route: 065

REACTIONS (10)
  - Liver transplant rejection [Unknown]
  - Cholangitis [Recovering/Resolving]
  - Bile duct stenosis [Recovering/Resolving]
  - Toxicity to various agents [Unknown]
  - Biliary ischaemia [Recovering/Resolving]
  - Biloma [Recovering/Resolving]
  - Hepatic artery stenosis [Recovering/Resolving]
  - Enterococcal infection [Recovering/Resolving]
  - Pseudomonas infection [Recovering/Resolving]
  - Wound infection [Recovering/Resolving]
